FAERS Safety Report 15075159 (Version 1)
Quarter: 2018Q2

REPORT INFORMATION
  Report Type: Spontaneous
  Country: US (occurrence: US)
  Receive Date: 20180627
  Receipt Date: 20180627
  Transmission Date: 20180711
  Serious: Yes (Hospitalization, Other)
  Sender: FDA-Public Use
  Company Number: US-SAOL THERAPEUTICS-2017SAO01468

PATIENT
  Age: 34 Year
  Sex: Male

DRUGS (1)
  1. LIORESAL [Suspect]
     Active Substance: BACLOFEN
     Dosage: 449.7 ?G, \DAY
     Route: 037

REACTIONS (5)
  - Hyperhidrosis [Unknown]
  - Mental status changes [Unknown]
  - Ataxia [Unknown]
  - Dyskinesia [Unknown]
  - Seizure [Unknown]

NARRATIVE: CASE EVENT DATE: 201709
